FAERS Safety Report 5277723-8 (Version None)
Quarter: 2007Q1

REPORT INFORMATION
  Report Type: 
  Country: None (occurrence: None)
  Receive Date: 20070327
  Receipt Date: 20070315
  Transmission Date: 20070707
  Serious: Yes (Hospitalization)
  Sender: FDA-Public Use
  Company Number: FR-PFIZER INC-2007012010

PATIENT
  Sex: Male

DRUGS (3)
  1. SUTENT [Suspect]
     Indication: RENAL CELL CARCINOMA STAGE UNSPECIFIED
     Route: 048
  2. PRAZEPAM [Concomitant]
     Route: 048
  3. VENLAFAXINE HYDROCHLORIDE [Concomitant]
     Route: 048

REACTIONS (1)
  - EPILEPSY [None]
